FAERS Safety Report 9343301 (Version 1)
Quarter: 2013Q2

REPORT INFORMATION
  Report Type: Spontaneous
  Country: US (occurrence: US)
  Receive Date: 20130612
  Receipt Date: 20130612
  Transmission Date: 20140414
  Serious: No
  Sender: FDA-Public Use
  Company Number: US-B.I. PHARMACEUTICALS,INC./RIDGEFIELD-2013-BI-15655BP

PATIENT
  Age: 85 Year
  Sex: Female
  Weight: 39 kg

DRUGS (8)
  1. COMBIVENT [Suspect]
     Indication: CHRONIC OBSTRUCTIVE PULMONARY DISEASE
     Dosage: STRENGTH: 20 MCG / 100 MCG; DAILY DOSE: 80 MCG / 400 MCG
     Route: 055
     Dates: start: 20130530
  2. ATROVENT [Suspect]
     Indication: FACIAL BONES FRACTURE
     Dosage: 252 MG
     Route: 045
     Dates: start: 2012
  3. ATROVENT [Suspect]
     Indication: INJURY
  4. ASPIRIN [Concomitant]
     Indication: CARDIAC MURMUR
     Dosage: 81 MG
     Route: 048
  5. LEVOTHYROXINE [Concomitant]
     Indication: HYPOTHYROIDISM
     Dosage: 50 MCG
     Route: 048
  6. CALCIUM AND VITD TABLETS [Concomitant]
     Indication: OSTEOPOROSIS
     Dosage: STRENGTH: 600 MG/ 200 UNITS; DAILY DOSE: 1200 MG / 400 UNITS
     Route: 048
  7. ALPRAZOLAM [Concomitant]
     Indication: ANXIETY
     Route: 048
  8. PRED FORTE EYE DROPS 1% [Concomitant]
     Indication: EYE INJURY
     Dosage: STRENGTH: 1 DROP; DAILY DOSE: 1 DROP

REACTIONS (1)
  - Dyspnoea [Not Recovered/Not Resolved]
